FAERS Safety Report 4962778-8 (Version None)
Quarter: 2006Q1

REPORT INFORMATION
  Report Type: 
  Country: None (occurrence: None)
  Receive Date: 20060201
  Receipt Date: 20051108
  Transmission Date: 20060701
  Serious: No
  Sender: FDA-Public Use
  Company Number: 2005PV004175

PATIENT
  Age: 56 Year
  Sex: Male

DRUGS (5)
  1. BYETTA [Suspect]
     Indication: DIABETES MELLITUS NON-INSULIN-DEPENDENT
     Dosage: 5 MCG;BID;SC
     Route: 058
     Dates: start: 20051026
  2. BENICAR [Concomitant]
  3. TRICOR [Concomitant]
  4. ZOCOR [Concomitant]
  5. AVANDAMET [Concomitant]

REACTIONS (3)
  - NERVE COMPRESSION [None]
  - PRURITUS [None]
  - RASH GENERALISED [None]
